FAERS Safety Report 8178640-6 (Version None)
Quarter: 2012Q1

REPORT INFORMATION
  Report Type: 
  Country: None (occurrence: None)
  Receive Date: 20120301
  Receipt Date: 20120227
  Transmission Date: 20120608
  Serious: Yes (Other)
  Sender: FDA-Public Use
  Company Number: US-MERCK-1202USA04239

PATIENT
  Sex: Male

DRUGS (2)
  1. HYZAAR [Suspect]
     Route: 048
     Dates: start: 20120225
  2. HYZAAR [Suspect]
     Indication: HYPERTENSION
     Route: 048
     Dates: start: 20090101

REACTIONS (3)
  - HOT FLUSH [None]
  - TREMOR [None]
  - BLOOD PRESSURE INCREASED [None]
